FAERS Safety Report 14734461 (Version 5)
Quarter: 2018Q3

REPORT INFORMATION
  Report Type: Report from Study
  Country: US (occurrence: US)
  Receive Date: 20180409
  Receipt Date: 20180724
  Transmission Date: 20181010
  Serious: Yes (Hospitalization)
  Sender: FDA-Public Use
  Company Number: US-BAYER-2018-063702

PATIENT
  Sex: Female

DRUGS (8)
  1. STIVARGA [Suspect]
     Active Substance: REGORAFENIB
     Indication: INTESTINAL METASTASIS
     Dosage: 160 MG EVERY DAY FOR 21 DAYS ON, 7 DAYS OFF, TAKE WITH A LOW FAT BREAKFAST
     Route: 048
  2. TRAMADOL HYDROCHLORIDE. [Concomitant]
     Active Substance: TRAMADOL HYDROCHLORIDE
  3. HYDROCODONE/ACETAMINOPHEN [Concomitant]
     Active Substance: ACETAMINOPHEN\HYDROCODONE
  4. STIVARGA [Suspect]
     Active Substance: REGORAFENIB
     Indication: INTESTINAL METASTASIS
     Dosage: 160 MG EVERY DAY FOR 21 DAYS ON, 7 DAYS OFF, TAKE WITH A LOW FAT BREAKFAST
     Route: 048
     Dates: start: 20180403, end: 2018
  5. STIVARGA [Suspect]
     Active Substance: REGORAFENIB
     Indication: METASTASES TO RECTUM
     Dosage: DAILY DOSE 120 MG (FOR 21 DAYS ON THEN 7 DAYS OFF)
     Route: 048
     Dates: start: 20180313, end: 2018
  6. TRIAMCINOLONE ACETONIDE. [Concomitant]
     Active Substance: TRIAMCINOLONE ACETONIDE
  7. STIVARGA [Suspect]
     Active Substance: REGORAFENIB
     Indication: INTESTINAL METASTASIS
     Dosage: DAILY DOSE 120 MG (FOR 21 DAYS ON THEN 7 DAYS OFF)
     Route: 048
     Dates: start: 201805, end: 2018
  8. PROMETHAZINE HYDROCHLORIDE. [Concomitant]
     Active Substance: PROMETHAZINE HYDROCHLORIDE

REACTIONS (10)
  - Malaise [Not Recovered/Not Resolved]
  - Pain in extremity [Not Recovered/Not Resolved]
  - Pain [Not Recovered/Not Resolved]
  - Fatigue [Recovered/Resolved]
  - Product use in unapproved indication [None]
  - Off label use [None]
  - Hospitalisation [Not Recovered/Not Resolved]
  - Pain [Not Recovered/Not Resolved]
  - Fatigue [Not Recovered/Not Resolved]
  - Skin disorder [Recovered/Resolved]

NARRATIVE: CASE EVENT DATE: 2018
